FAERS Safety Report 15082180 (Version 2)
Quarter: 2018Q3

REPORT INFORMATION
  Report Type: Spontaneous
  Country: JP (occurrence: JP)
  Receive Date: 20180628
  Receipt Date: 20180823
  Transmission Date: 20181010
  Serious: Yes (Hospitalization)
  Sender: FDA-Public Use
  Company Number: JP-OTSUKA-2018_017805AA

PATIENT
  Age: 8 Decade
  Sex: Male

DRUGS (4)
  1. ABILIFY MAINTENA [Concomitant]
     Active Substance: ARIPIPRAZOLE
     Indication: PRODUCT USED FOR UNKNOWN INDICATION
     Dosage: UNK
     Route: 030
  2. LONASEN [Concomitant]
     Active Substance: BLONANSERIN
     Indication: PRODUCT USED FOR UNKNOWN INDICATION
     Dosage: UNK
     Route: 048
     Dates: end: 20180510
  3. REXULTI [Suspect]
     Active Substance: BREXPIPRAZOLE
     Indication: SCHIZOPHRENIA
     Dosage: 2 MG, DAILY DOSE
     Route: 048
     Dates: start: 20180426
  4. QUAZEPAM. [Suspect]
     Active Substance: QUAZEPAM
     Indication: PRODUCT USED FOR UNKNOWN INDICATION
     Dosage: 15 MG, DAILY DOSE
     Route: 048

REACTIONS (2)
  - Vomiting [Unknown]
  - Pneumonia aspiration [Not Recovered/Not Resolved]

NARRATIVE: CASE EVENT DATE: 20180610
